FAERS Safety Report 8936967 (Version 1)
Quarter: 2012Q4

REPORT INFORMATION
  Report Type: Report from Study
  Country: GB (occurrence: US)
  Receive Date: 20121130
  Receipt Date: 20121130
  Transmission Date: 20130627
  Serious: Yes (Hospitalization)
  Sender: FDA-Public Use
  Company Number: US-BRISTOL-MYERS SQUIBB COMPANY-17148610

PATIENT
  Age: 51 Year
  Sex: Male

DRUGS (3)
  1. CETUXIMAB [Suspect]
     Indication: HEAD AND NECK CANCER
     Dosage: Last inf:25Oct2010.
     Dates: start: 20100913
  2. CISPLATIN [Suspect]
     Indication: HEAD AND NECK CANCER
     Dosage: Last inf:25Oct2010.
     Dates: start: 20100913
  3. BEVACIZUMAB [Suspect]
     Indication: HEAD AND NECK CANCER
     Dosage: Last inf:25Oct2010.
     Dates: start: 20100913

REACTIONS (1)
  - Dysphagia [Unknown]
